FAERS Safety Report 21114344 (Version 1)
Quarter: 2022Q3

REPORT INFORMATION
  Report Type: Report from Study
  Country: US (occurrence: US)
  Receive Date: 20220721
  Receipt Date: 20220721
  Transmission Date: 20221026
  Serious: Yes (Other)
  Sender: FDA-Public Use
  Company Number: US-ASTELLAS-2022US017584

PATIENT
  Age: 74 Year
  Sex: Male

DRUGS (3)
  1. ENZALUTAMIDE [Interacting]
     Active Substance: ENZALUTAMIDE
     Indication: Prostate examination abnormal
     Route: 048
     Dates: start: 20220412, end: 20220511
  2. ENZALUTAMIDE [Interacting]
     Active Substance: ENZALUTAMIDE
     Route: 048
     Dates: start: 20220513, end: 20220611
  3. NIFEDIPINE [Interacting]
     Active Substance: NIFEDIPINE
     Indication: Product used for unknown indication
     Dosage: UNK UNK, UNKNOWN FREQ.
     Route: 065

REACTIONS (12)
  - Blood pressure abnormal [Not Recovered/Not Resolved]
  - Eye pain [Recovering/Resolving]
  - Dry eye [Recovering/Resolving]
  - Abdominal discomfort [Recovered/Resolved]
  - Decreased appetite [Recovered/Resolved]
  - Dizziness [Recovering/Resolving]
  - Asthenia [Not Recovered/Not Resolved]
  - Dyspnoea exertional [Not Recovered/Not Resolved]
  - Chest discomfort [Recovered/Resolved]
  - Drug interaction [Unknown]
  - Product availability issue [Unknown]
  - Off label use [Unknown]

NARRATIVE: CASE EVENT DATE: 20220412
